FAERS Safety Report 7921678-1 (Version None)
Quarter: 2011Q4

REPORT INFORMATION
  Report Type: 
  Country: None (occurrence: None)
  Receive Date: 20111117
  Receipt Date: 20111110
  Transmission Date: 20120403
  Serious: Yes (Hospitalization)
  Sender: FDA-Public Use
  Company Number: US-GLAXOSMITHKLINE-A0853153A

PATIENT
  Age: 57 Year
  Sex: Male
  Weight: 112.2 kg

DRUGS (1)
  1. AVANDIA [Suspect]
     Indication: DIABETES MELLITUS
     Dosage: 8MG PER DAY
     Route: 048
     Dates: start: 19991116, end: 20040120

REACTIONS (3)
  - MYOCARDIAL INFARCTION [None]
  - CORONARY ARTERY OCCLUSION [None]
  - CAROTID ARTERY OCCLUSION [None]
